FAERS Safety Report 5002895-X (Version None)
Quarter: 2006Q2

REPORT INFORMATION
  Report Type: 
  Country: None (occurrence: None)
  Receive Date: 20060516
  Receipt Date: 20060509
  Transmission Date: 20061013
  Serious: Yes (Other)
  Sender: FDA-Public Use
  Company Number: 2006PK01000

PATIENT
  Age: 8 Year
  Sex: Female

DRUGS (1)
  1. EMLA [Suspect]
     Indication: LOCAL ANAESTHESIA

REACTIONS (1)
  - DERMATITIS BULLOUS [None]
